FAERS Safety Report 4343274-8 (Version None)
Quarter: 2004Q1

REPORT INFORMATION
  Report Type: 
  Country: None (occurrence: None)
  Receive Date: 20040325
  Receipt Date: 20031124
  Transmission Date: 20041129
  Serious: No
  Sender: FDA-Public Use
  Company Number: USA031153361

PATIENT
  Age: 75 Year
  Sex: Female

DRUGS (5)
  1. FORTEO [Suspect]
     Dates: start: 20031120
  2. MAVIK [Concomitant]
  3. PENTA-TRIAMTERENE HCTZ [Concomitant]
  4. ASPIRIN [Concomitant]
  5. MOTRIN [Concomitant]

REACTIONS (4)
  - DIZZINESS [None]
  - HEART RATE INCREASED [None]
  - NERVOUSNESS [None]
  - PALPITATIONS [None]
